FAERS Safety Report 21553535 (Version 2)
Quarter: 2023Q1

REPORT INFORMATION
  Report Type: Report from Study
  Country: BR (occurrence: BR)
  Receive Date: 20221104
  Receipt Date: 20230127
  Transmission Date: 20230417
  Serious: Yes (Other)
  Sender: FDA-Public Use
  Company Number: BR-JNJFOC-20221056476

PATIENT
  Sex: Female
  Weight: 83 kg

DRUGS (3)
  1. INFLIXIMAB [Suspect]
     Active Substance: INFLIXIMAB
     Indication: Rheumatoid arthritis
     Route: 041
     Dates: start: 20210831
  2. REMICADE [Suspect]
     Active Substance: INFLIXIMAB
     Indication: Rheumatoid arthritis
     Route: 041
     Dates: start: 20210831
  3. LOSARTAN [Concomitant]
     Active Substance: LOSARTAN

REACTIONS (8)
  - Thyroid cancer [Unknown]
  - Tremor [Unknown]
  - Chills [Unknown]
  - Infusion related reaction [Unknown]
  - Hypertension [Unknown]
  - Nausea [Unknown]
  - Palpitations [Unknown]
  - Off label use [Unknown]
